FAERS Safety Report 10049722 (Version 1)
Quarter: 2014Q1

REPORT INFORMATION
  Report Type: Spontaneous
  Country: PL (occurrence: None)
  Receive Date: 20140328
  Receipt Date: 20140328
  Transmission Date: 20141002
  Serious: Yes (Death, Hospitalization)
  Sender: FDA-Public Use
  Company Number: 2014P1002460

PATIENT
  Age: 19 Year
  Sex: Male

DRUGS (5)
  1. ISONIAZID [Suspect]
     Route: 048
  2. RIFAMPICIN [Suspect]
     Route: 048
  3. PYRAZINAMIDE [Suspect]
     Route: 048
  4. KETOPROFENE [Suspect]
     Route: 048
  5. ALCOHOL [Suspect]
     Route: 048

REACTIONS (23)
  - Completed suicide [None]
  - Dyspnoea [None]
  - Hyperhidrosis [None]
  - Tremor [None]
  - Pruritus [None]
  - Red man syndrome [None]
  - Somnolence [None]
  - Hyperventilation [None]
  - Overdose [None]
  - Nystagmus [None]
  - Chest pain [None]
  - Heart injury [None]
  - Sinus tachycardia [None]
  - Acute left ventricular failure [None]
  - Pulmonary oedema [None]
  - Cardiogenic shock [None]
  - Metabolic acidosis [None]
  - Arrhythmia [None]
  - Bradycardia [None]
  - Cardiac arrest [None]
  - Ventricular fibrillation [None]
  - Cytotoxic cardiomyopathy [None]
  - Toxicity to various agents [None]
